FAERS Safety Report 9143861 (Version 1)
Quarter: 2013Q1

REPORT INFORMATION
  Report Type: Spontaneous
  Country: IT (occurrence: IT)
  Receive Date: 20130306
  Receipt Date: 20130306
  Transmission Date: 20140127
  Serious: Yes (Hospitalization)
  Sender: FDA-Public Use
  Company Number: PHHY2013IT021697

PATIENT
  Age: 33 Year
  Sex: Male

DRUGS (2)
  1. OMEPRAZOLE [Suspect]
     Indication: GASTRITIS
     Dosage: 20 MG, TOTAL
     Route: 048
     Dates: start: 20130226, end: 20130226
  2. SYNFLEX [Suspect]
     Indication: ABDOMINAL PAIN
     Dosage: 1 DF, UNK
     Route: 048
     Dates: start: 20130226, end: 20130226

REACTIONS (3)
  - Dyspnoea [Recovering/Resolving]
  - Face oedema [Recovering/Resolving]
  - Urticaria [Recovering/Resolving]
